FAERS Safety Report 5950384-8 (Version None)
Quarter: 2008Q4

REPORT INFORMATION
  Report Type: 
  Country: None (occurrence: None)
  Receive Date: 20081112
  Receipt Date: 20081106
  Transmission Date: 20090506
  Serious: Yes (Hospitalization)
  Sender: FDA-Public Use
  Company Number: PHEH2008US10064

PATIENT
  Sex: Male

DRUGS (1)
  1. LOPRESSOR [Suspect]
     Dosage: UNK, UNK
     Route: 048

REACTIONS (2)
  - DRUG DOSE OMISSION [None]
  - DYSPHAGIA [None]
